FAERS Safety Report 12816157 (Version 1)
Quarter: 2016Q4

REPORT INFORMATION
  Report Type: Spontaneous
  Country: US (occurrence: US)
  Receive Date: 20161005
  Receipt Date: 20161005
  Transmission Date: 20170207
  Serious: No
  Sender: FDA-Public Use
  Company Number: US-AMGEN-USASP2015101179

PATIENT
  Age: 64 Year
  Sex: Female

DRUGS (1)
  1. PROLIA [Suspect]
     Active Substance: DENOSUMAB
     Indication: PRODUCT USED FOR UNKNOWN INDICATION
     Dosage: UNK
     Route: 065

REACTIONS (9)
  - Pain in extremity [Unknown]
  - Oropharyngeal pain [Unknown]
  - Joint swelling [Unknown]
  - Tachycardia [Unknown]
  - Bone pain [Unknown]
  - Arthralgia [Unknown]
  - Extrapyramidal disorder [Unknown]
  - Pyrexia [Unknown]
  - Hyperhidrosis [Unknown]
